FAERS Safety Report 9648714 (Version 1)
Quarter: 2013Q4

REPORT INFORMATION
  Report Type: Spontaneous
  Country: US (occurrence: US)
  Receive Date: 20131028
  Receipt Date: 20131028
  Transmission Date: 20140711
  Serious: No
  Sender: FDA-Public Use
  Company Number: US-BAUSCH-BL-2013-005229

PATIENT
  Age: 69 Year
  Sex: Female

DRUGS (3)
  1. PROLENSA (BROMFENAC OPHTHALMIC SOLUTION) 0.07% [Suspect]
     Indication: POSTOPERATIVE CARE
     Dosage: 1 DROP; ONCE DAILY; RIGHT EYE
     Route: 047
     Dates: start: 20130923
  2. PROLENSA (BROMFENAC OPHTHALMIC SOLUTION) 0.07% [Suspect]
     Indication: EYE INFLAMMATION
  3. SYSTANE [Concomitant]
     Indication: DRY EYE

REACTIONS (1)
  - Instillation site pain [Recovered/Resolved]
